FAERS Safety Report 13034521 (Version 3)
Quarter: 2020Q2

REPORT INFORMATION
  Report Type: Report from Study
  Country: AU (occurrence: AU)
  Receive Date: 20161216
  Receipt Date: 20200518
  Transmission Date: 20200713
  Serious: Yes (Hospitalization)
  Sender: FDA-Public Use
  Company Number: AU-JNJFOC-20161210722

PATIENT
  Age: 76 Year
  Sex: Male

DRUGS (1)
  1. STELARA [Suspect]
     Active Substance: USTEKINUMAB
     Indication: PSORIASIS
     Route: 058
     Dates: start: 20161111

REACTIONS (4)
  - Stress [Recovering/Resolving]
  - Acne [Recovering/Resolving]
  - Fall [Recovering/Resolving]
  - Rash erythematous [Recovering/Resolving]

NARRATIVE: CASE EVENT DATE: 20161124
